FAERS Safety Report 8756333 (Version 9)
Quarter: 2016Q4

REPORT INFORMATION
  Report Type: Spontaneous
  Country: US (occurrence: US)
  Receive Date: 20120828
  Receipt Date: 20161006
  Transmission Date: 20170207
  Serious: Yes (Hospitalization, Disabling, Other)
  Sender: FDA-Public Use
  Company Number: US-009507513-1208USA009487

PATIENT
  Sex: Female
  Weight: 61.68 kg

DRUGS (6)
  1. ALENDRONATE SODIUM. [Suspect]
     Active Substance: ALENDRONATE SODIUM
     Indication: OSTEOPOROSIS
     Dosage: 70 MG, QW
     Route: 048
     Dates: start: 20080307, end: 200812
  2. FOSAMAX [Suspect]
     Active Substance: ALENDRONATE SODIUM
     Indication: OSTEOPOROSIS
     Dosage: 10 MG, QD
     Route: 048
     Dates: start: 20010630, end: 20020101
  3. FOSAMAX [Suspect]
     Active Substance: ALENDRONATE SODIUM
     Dosage: 70 MG, QW
     Route: 048
     Dates: start: 20070201, end: 200803
  4. FOSAMAX [Suspect]
     Active Substance: ALENDRONATE SODIUM
     Dosage: 70 MG, QW
     Route: 048
     Dates: start: 20030102, end: 200608
  5. ALENDRONATE SODIUM. [Suspect]
     Active Substance: ALENDRONATE SODIUM
     Dosage: 70 MG, QW
     Route: 048
     Dates: start: 20111205, end: 201201
  6. ALENDRONATE SODIUM. [Suspect]
     Active Substance: ALENDRONATE SODIUM
     Dosage: 70 MG, QW
     Route: 048
     Dates: start: 20081223, end: 201112

REACTIONS (20)
  - Hyperthyroidism [Unknown]
  - Vitamin D decreased [Unknown]
  - Femur fracture [Recovering/Resolving]
  - Emotional distress [Unknown]
  - Large intestine polyp [Unknown]
  - Peripheral sensory neuropathy [Not Recovered/Not Resolved]
  - Fall [Unknown]
  - Hypothyroidism [Unknown]
  - Haemorrhagic anaemia [Unknown]
  - Chronic kidney disease [Recovering/Resolving]
  - Spinal claudication [Unknown]
  - Hypertension [Unknown]
  - Hand fracture [Unknown]
  - Arthropathy [Unknown]
  - Lumbar spinal stenosis [Unknown]
  - Weight decreased [Unknown]
  - Spinal operation [Unknown]
  - Varicose vein [Unknown]
  - Muscular weakness [Unknown]
  - Blood cholesterol increased [Unknown]

NARRATIVE: CASE EVENT DATE: 2002
